FAERS Safety Report 7033121-8 (Version None)
Quarter: 2010Q4

REPORT INFORMATION
  Report Type: 
  Country: None (occurrence: None)
  Receive Date: 20101007
  Receipt Date: 20101007
  Transmission Date: 20110411
  Serious: Yes (Hospitalization)
  Sender: FDA-Public Use
  Company Number: US-EISAI INC.-E2007-00690-CLI-US

PATIENT
  Sex: Female
  Weight: 75 kg

DRUGS (16)
  1. ZONISAMIDE [Suspect]
     Indication: EPILEPSY
     Route: 048
     Dates: start: 20080501
  2. E2007 (PERAMPANEL) [Suspect]
     Indication: EPILEPSY
     Dosage: TITRATION PHASE
     Route: 048
     Dates: start: 20091030, end: 20100302
  3. E2007 (PERAMPANEL) [Suspect]
     Dosage: MAINTENANCE PHASE
     Route: 048
     Dates: start: 20100303, end: 20100714
  4. E2007 (PERAMPANEL) [Suspect]
     Dosage: MAINTENANCE PHASE
     Route: 048
     Dates: start: 20100715, end: 20100822
  5. ESTROGEN [Concomitant]
     Route: 061
     Dates: start: 20100420
  6. IMODIUM A-D [Concomitant]
     Route: 048
     Dates: start: 19910101
  7. CASCARA TAB [Concomitant]
     Indication: CONSTIPATION
     Route: 048
     Dates: start: 20080101
  8. PHENERGAN [Concomitant]
     Indication: NAUSEA
     Route: 048
     Dates: start: 20041116
  9. DARVOCET-N 100 [Concomitant]
     Dosage: 100-650 MG
     Route: 048
     Dates: start: 20090806
  10. CYMBALTA [Concomitant]
     Indication: DEPRESSION
     Route: 048
     Dates: start: 20081027
  11. TRAZODONE HCL [Concomitant]
     Indication: ANXIETY
     Route: 048
     Dates: start: 20080423
  12. LUNESTA [Concomitant]
     Indication: INSOMNIA
     Route: 048
     Dates: start: 20090507
  13. ADVIL LIQUI-GELS [Concomitant]
     Indication: FIBROMYALGIA
     Route: 048
     Dates: start: 20080101
  14. ADVIL LIQUI-GELS [Concomitant]
     Indication: MIGRAINE
  15. CLARITIN-D [Concomitant]
     Indication: SEASONAL ALLERGY
     Route: 048
     Dates: start: 19990101
  16. XANAX [Concomitant]
     Indication: ANXIETY
     Route: 048
     Dates: start: 20100416

REACTIONS (5)
  - DEPRESSION [None]
  - HOMICIDAL IDEATION [None]
  - NEPHROLITHIASIS [None]
  - SUICIDAL IDEATION [None]
  - URINARY TRACT INFECTION [None]
